FAERS Safety Report 7403157-3 (Version None)
Quarter: 2011Q2

REPORT INFORMATION
  Report Type: 
  Country: None (occurrence: None)
  Receive Date: 20110408
  Receipt Date: 20110405
  Transmission Date: 20111010
  Serious: Yes (Disabling, Other)
  Sender: FDA-Public Use
  Company Number: US-PFIZER INC-2011018826

PATIENT
  Sex: Female

DRUGS (5)
  1. CYMBALTA [Concomitant]
     Indication: NEURALGIA
     Dosage: UNK
     Dates: start: 20050101
  2. AMBIEN [Concomitant]
     Indication: INSOMNIA
     Dosage: UNK
     Dates: start: 20060101, end: 20100101
  3. CHANTIX [Suspect]
     Indication: SMOKING CESSATION THERAPY
     Dosage: 1 MG, UNK
     Dates: start: 20070501, end: 20070719
  4. MONOPRIL [Concomitant]
     Indication: HYPERTENSION
     Dosage: UNK
     Dates: start: 20010101
  5. ELAVIL [Concomitant]
     Indication: MIGRAINE
     Dosage: UNK
     Dates: start: 20000101

REACTIONS (11)
  - INJURY [None]
  - DEPRESSION [None]
  - ANXIETY [None]
  - NERVE INJURY [None]
  - ABNORMAL BEHAVIOUR [None]
  - FALL [None]
  - LOSS OF CONSCIOUSNESS [None]
  - CONVULSION [None]
  - AGGRESSION [None]
  - EMOTIONAL DISTRESS [None]
  - MENTAL DISORDER [None]
